FAERS Safety Report 18542947 (Version 3)
Quarter: 2021Q1

REPORT INFORMATION
  Report Type: Spontaneous
  Country: ES (occurrence: ES)
  Receive Date: 20201125
  Receipt Date: 20210212
  Transmission Date: 20210419
  Serious: Yes (Other)
  Sender: FDA-Public Use
  Company Number: ES-REGENERON PHARMACEUTICALS, INC.-2020-90352

PATIENT

DRUGS (6)
  1. EYLEA [Suspect]
     Active Substance: AFLIBERCEPT
     Dosage: 3 DOSES, UNTIL PATIENT REGAIN ANATOMICAL AND VISUAL STABILITY
     Route: 031
     Dates: start: 201807
  2. EYLEA [Suspect]
     Active Substance: AFLIBERCEPT
     Dosage: 7TH INJECTION, 6 WEEKS AFTER 6TH INJECTION (TREAT AND EXTEND REGIMEN)
     Route: 031
  3. EYLEA [Suspect]
     Active Substance: AFLIBERCEPT
     Dosage: 8TH INJECTION, 4 WEEKS AFTER 7TH INJECTION
     Route: 031
  4. EYLEA [Suspect]
     Active Substance: AFLIBERCEPT
     Dosage: 2ND ATTEMPT TREAT AND EXTEND: EVERY 8WEEKS
     Route: 031
  5. EYLEA [Suspect]
     Active Substance: AFLIBERCEPT
     Indication: AGE-RELATED MACULAR DEGENERATION
     Dosage: LOADING DOSE: 1 DF, Q1MON, FOR 3 MONTHS
     Route: 031
     Dates: start: 201804, end: 201806
  6. EYLEA [Suspect]
     Active Substance: AFLIBERCEPT
     Dosage: TREAT AND EXTEND: EVERY 2 WEEKS (AFTER THE 8TH INJECTION)
     Route: 031

REACTIONS (9)
  - Off label use [Unknown]
  - Visual acuity reduced [Recovered/Resolved]
  - Visual acuity reduced [Recovered/Resolved]
  - Cataract [Recovered/Resolved]
  - Drug ineffective [Unknown]
  - Macular thickening [Recovered/Resolved]
  - Subretinal fluid [Recovered/Resolved]
  - Detachment of retinal pigment epithelium [Recovering/Resolving]
  - Product use issue [Unknown]

NARRATIVE: CASE EVENT DATE: 2019
